FAERS Safety Report 19728633 (Version 1)
Quarter: 2021Q3

REPORT INFORMATION
  Report Type: Spontaneous
  Country: NO (occurrence: NO)
  Receive Date: 20210820
  Receipt Date: 20210820
  Transmission Date: 20211014
  Serious: Yes (Hospitalization)
  Sender: FDA-Public Use
  Company Number: NO-PURDUE-USA-2021-0282194

PATIENT
  Age: 88 Year
  Sex: Female

DRUGS (14)
  1. BRONKYL FORTE [Concomitant]
     Dosage: 600 MG, DAILY
  2. MOVICOL [Concomitant]
     Active Substance: POLYETHYLENE GLYCOL 3350\POTASSIUM CHLORIDE\SODIUM BICARBONATE\SODIUM CHLORIDE
     Dosage: UNK UNK, PRN [WHEN NEEDED]
  3. SYMBICORT [Concomitant]
     Active Substance: BUDESONIDE\FORMOTEROL FUMARATE DIHYDRATE
     Dosage: 2 UNIT, Q12H
  4. SOBRIL [Concomitant]
     Active Substance: OXAZEPAM
     Dosage: 5 MG, PRN [WHEN NEEDED, UP TO 2 TIMES A DAY]
  5. NORSPAN [Suspect]
     Active Substance: BUPRENORPHINE
     Indication: BACK PAIN
     Route: 062
     Dates: start: 20210623
  6. LAXOBERAL [Concomitant]
     Active Substance: SODIUM PICOSULFATE
     Dosage: 10?15 DROPLETS WHEN NEEDED
  7. SINGULAIR [Concomitant]
     Active Substance: MONTELUKAST SODIUM
  8. LANSOPRAZOLE. [Concomitant]
     Active Substance: LANSOPRAZOLE
     Dosage: 30 MG, DAILY
  9. LACTULOSE MIP [Concomitant]
     Dosage: 15 ML, Q12H
  10. PARACETAMOL [Concomitant]
     Active Substance: ACETAMINOPHEN
     Dosage: 1 G, Q6H
  11. CETIRIZINE [Concomitant]
     Active Substance: CETIRIZINE HYDROCHLORIDE
     Route: 065
  12. CALCIGRAN FORTE [Concomitant]
     Active Substance: CALCIUM CARBONATE\CHOLECALCIFEROL
     Dosage: 1 UNIT, Q12H
  13. ALENDRONIC ACID [Concomitant]
     Active Substance: ALENDRONIC ACID
     Dosage: 70 MG, WEEKLY (EVERY WEDNESDAY)
  14. SPIRIVA RESPIMAT [Concomitant]
     Active Substance: TIOTROPIUM BROMIDE
     Dosage: 2 UNIT, DAILY

REACTIONS (3)
  - Delirium [Unknown]
  - Cognitive disorder [Unknown]
  - Confusional state [Unknown]

NARRATIVE: CASE EVENT DATE: 20210711
